FAERS Safety Report 9165930 (Version 1)
Quarter: 2013Q1

REPORT INFORMATION
  Report Type: Report from Study
  Country: CA (occurrence: CA)
  Receive Date: 20130315
  Receipt Date: 20130315
  Transmission Date: 20140127
  Serious: Yes (Other)
  Sender: FDA-Public Use
  Company Number: CA-JNJFOC-20130302148

PATIENT
  Age: 76 Year
  Sex: Female
  Weight: 55.4 kg

DRUGS (10)
  1. REMICADE [Suspect]
     Indication: RHEUMATOID ARTHRITIS
     Route: 042
     Dates: start: 2000
  2. METHOTREXATE [Concomitant]
     Route: 065
  3. RANITIDINE [Concomitant]
     Route: 065
  4. FOLIC ACID [Concomitant]
     Route: 065
  5. WATER PILL NOS [Concomitant]
     Route: 065
  6. ACTONEL [Concomitant]
     Route: 065
  7. ZOPICLONE [Concomitant]
     Route: 065
  8. B12 [Concomitant]
     Route: 065
  9. VITAMIN D [Concomitant]
     Route: 065
  10. NASAL SPRAY (NOS) [Concomitant]
     Route: 065

REACTIONS (2)
  - Fall [Recovered/Resolved]
  - Back pain [Recovered/Resolved]
